FAERS Safety Report 21690015 (Version 3)
Quarter: 2022Q4

REPORT INFORMATION
  Report Type: Report from Study
  Country: FR (occurrence: FR)
  Receive Date: 20221206
  Receipt Date: 20221219
  Transmission Date: 20230112
  Serious: Yes (Hospitalization, Other)
  Sender: FDA-Public Use
  Company Number: FR-GILEAD-2022-0607859

PATIENT
  Sex: Female
  Weight: 77 kg

DRUGS (4)
  1. SACITUZUMAB GOVITECAN-HZIY [Suspect]
     Active Substance: SACITUZUMAB GOVITECAN-HZIY
     Indication: Breast cancer metastatic
     Dosage: 10 MG/KG, CYCLE 1, DAYS 1, 8
     Route: 042
     Dates: start: 20220801, end: 20220808
  2. SACITUZUMAB GOVITECAN-HZIY [Suspect]
     Active Substance: SACITUZUMAB GOVITECAN-HZIY
     Dosage: 10 MG/KG, CYCLE 2, DAYS 1, 8
     Route: 042
     Dates: start: 20220822, end: 20220829
  3. SACITUZUMAB GOVITECAN-HZIY [Suspect]
     Active Substance: SACITUZUMAB GOVITECAN-HZIY
     Dosage: 10 MG/KG, CYCLE 3, DAYS 1, 8
     Route: 042
     Dates: start: 20220912, end: 20220919
  4. SACITUZUMAB GOVITECAN-HZIY [Suspect]
     Active Substance: SACITUZUMAB GOVITECAN-HZIY
     Dosage: 10 MG/KG, CYCLE 4, DAY 1
     Route: 042
     Dates: start: 20221109

REACTIONS (3)
  - Pneumocystis jirovecii pneumonia [Unknown]
  - Epilepsy [Recovered/Resolved]
  - Radiotherapy to brain [Unknown]

NARRATIVE: CASE EVENT DATE: 20221006
